FAERS Safety Report 9266669 (Version 1)
Quarter: 2013Q2

REPORT INFORMATION
  Report Type: Report from Study
  Country: DE (occurrence: DE)
  Receive Date: 20130502
  Receipt Date: 20130502
  Transmission Date: 20140414
  Serious: Yes (Hospitalization)
  Sender: FDA-Public Use
  Company Number: DE-ROCHE-1219857

PATIENT
  Age: 48 Year
  Sex: Female

DRUGS (6)
  1. RIBAVIRIN [Suspect]
     Indication: HEPATITIS C
     Route: 048
     Dates: start: 20120424
  2. PEG-INTERFERON ALFA 2A [Suspect]
     Indication: HEPATITIS C
     Route: 058
     Dates: start: 20120424
  3. DACLATASVIR [Suspect]
     Indication: HEPATITIS C
     Route: 048
     Dates: start: 20120424
  4. CITALOPRAM [Concomitant]
     Route: 065
     Dates: start: 20120813
  5. EMTRICITABINE [Concomitant]
     Indication: HIV INFECTION
     Route: 065
     Dates: start: 20130220
  6. TENOFOVIR [Concomitant]
     Indication: HIV INFECTION
     Route: 065
     Dates: start: 20130220

REACTIONS (1)
  - Ataxia [Not Recovered/Not Resolved]
